FAERS Safety Report 5041154-6 (Version None)
Quarter: 2006Q3

REPORT INFORMATION
  Report Type: 
  Country: None (occurrence: None)
  Receive Date: 20060703
  Receipt Date: 20060412
  Transmission Date: 20061208
  Serious: Yes (Hospitalization)
  Sender: FDA-Public Use
  Company Number: US-BRISTOL-MYERS SQUIBB COMPANY-13344502

PATIENT
  Age: 54 Year
  Sex: Male
  Weight: 141 kg

DRUGS (6)
  1. ORENCIA [Suspect]
     Indication: RHEUMATOID ARTHRITIS
     Route: 042
     Dates: start: 20040401, end: 20060123
  2. METHOTREXATE [Concomitant]
     Route: 048
     Dates: start: 20020416
  3. PREDNISONE [Concomitant]
     Route: 048
     Dates: start: 20060105
  4. PRILOSEC [Concomitant]
     Route: 048
     Dates: start: 20060309
  5. ACTONEL [Concomitant]
     Route: 048
     Dates: start: 20060116
  6. LEVOTHROID [Concomitant]
     Route: 048
     Dates: start: 20060105

REACTIONS (1)
  - PANCREAS INFECTION [None]
